FAERS Safety Report 9393143 (Version 1)
Quarter: 2013Q3

REPORT INFORMATION
  Report Type: Spontaneous
  Country: US (occurrence: US)
  Receive Date: 20130710
  Receipt Date: 20130710
  Transmission Date: 20140515
  Serious: Yes (Other)
  Sender: FDA-Public Use
  Company Number: US-ROCHE-1240053

PATIENT
  Age: 49 Year
  Sex: Female
  Weight: 79 kg

DRUGS (5)
  1. XOLAIR [Suspect]
     Indication: ASTHMA
     Dosage: MOST RECENT DOSE ON 18/JUN/2013
     Route: 058
  2. ESTRACE [Concomitant]
     Dosage: QD
     Route: 048
  3. SYMBICORT [Concomitant]
     Dosage: 160 TO 4.5 MCG/ACUTATION INHALER
     Route: 065
  4. ALBUTEROL INHALER [Concomitant]
     Dosage: 90 MCG/ACUTATION INHALER, INHALE 2 PUFFS EVERY 6 HOURS AS NEEDED
     Route: 065
  5. PRAVACHOL [Concomitant]
     Dosage: QD
     Route: 048

REACTIONS (5)
  - Headache [Unknown]
  - Hyperhidrosis [Unknown]
  - Tremor [Unknown]
  - Nausea [Unknown]
  - Dizziness [Unknown]
